FAERS Safety Report 4790161-7 (Version None)
Quarter: 2005Q4

REPORT INFORMATION
  Report Type: 
  Country: None (occurrence: None)
  Receive Date: 20051005
  Receipt Date: 20051005
  Transmission Date: 20060501
  Serious: Yes (Hospitalization)
  Sender: FDA-Public Use
  Company Number: None

PATIENT
  Age: 49 Year
  Sex: Male

DRUGS (4)
  1. WELLBUTRIN SR [Suspect]
     Indication: DEPRESSION
     Dosage: 100 MG, 10 CAPS X 1 PO
     Route: 048
     Dates: start: 20040922
  2. EFFEXOR XR [Suspect]
     Indication: DEPRESSION
     Dosage: 10 CAPS X 1 PO
     Route: 048
     Dates: start: 20040922
  3. NALTREXONE [Concomitant]
  4. TIAGABINE HCL [Concomitant]

REACTIONS (4)
  - GRAND MAL CONVULSION [None]
  - INTENTIONAL DRUG MISUSE [None]
  - MUSCULOSKELETAL STIFFNESS [None]
  - OVERDOSE [None]
